FAERS Safety Report 23023869 (Version 2)
Quarter: 2023Q4

REPORT INFORMATION
  Report Type: Other
  Country: IT (occurrence: None)
  Receive Date: 20231003
  Receipt Date: 20231005
  Transmission Date: 20240109
  Serious: Yes (Other)
  Sender: FDA-Public Use
  Company Number: None

PATIENT
  Age: 50 Year
  Sex: Female

DRUGS (2)
  1. TRASTUZUMAB [Suspect]
     Active Substance: TRASTUZUMAB
     Indication: Breast cancer
     Dosage: REACTIONS MANIFESTED AFTER IV CYCLE - START OF THERAPY 16/06/2023 - THERAPY EVERY 7 DAYS
     Route: 042
     Dates: start: 20230707, end: 20230707
  2. PACLITAXEL [Suspect]
     Active Substance: PACLITAXEL
     Indication: Breast cancer
     Dosage: REACTIONS MANIFESTED AFTER IV CYCLE - START OF THERAPY 16/06/2023 - THERAPY EVERY 7 DAYS
     Route: 065
     Dates: start: 20230707, end: 20230707

REACTIONS (5)
  - Leukopenia [Recovered/Resolved]
  - Neutropenia [Recovered/Resolved]
  - Paraesthesia [Recovering/Resolving]
  - Azotaemia [Recovering/Resolving]
  - Off label use [Unknown]

NARRATIVE: CASE EVENT DATE: 20230707
